FAERS Safety Report 24638249 (Version 2)
Quarter: 2024Q4

REPORT INFORMATION
  Report Type: Spontaneous
  Country: US (occurrence: US)
  Receive Date: 20241119
  Receipt Date: 20241219
  Transmission Date: 20250114
  Serious: Yes (Other)
  Sender: PFIZER
  Company Number: US-PFIZER INC-PV202200069873

PATIENT
  Age: 67 Year
  Sex: Female
  Weight: 85.73 kg

DRUGS (5)
  1. IBRANCE [Suspect]
     Active Substance: PALBOCICLIB
     Indication: Breast cancer female
     Dosage: IBRANCE (PALBOCICLIB ORAL) 100 MG ORALLY DAILY
     Route: 048
  2. IBRANCE [Suspect]
     Active Substance: PALBOCICLIB
     Indication: Breast cancer metastatic
     Dosage: 75MG ONCE A DAY BY MOUTH FOR 3 WEEKS THEN OFF A WEEK
     Dates: start: 202110, end: 202404
  3. IBRANCE [Suspect]
     Active Substance: PALBOCICLIB
     Dosage: 75 MG ORALLY DAILY ON DAYS 1-21 OF EACH 28-DAY CYCLE
     Route: 048
  4. XANAX [Concomitant]
     Active Substance: ALPRAZOLAM
     Dosage: TAKE 1/2 TO 1 PILL EVERY 12 HRS AS NEEDED
     Route: 048
  5. ZITHROMAX [Concomitant]
     Active Substance: AZITHROMYCIN DIHYDRATE
     Dosage: TAKE TWO 250 MG TABS ON DAY ONE AND ONE 250 MG TAB ON DAYS 2-5
     Route: 048

REACTIONS (1)
  - Hysterectomy [Recovered/Resolved]

NARRATIVE: CASE EVENT DATE: 20240607
